FAERS Safety Report 7200544-3 (Version None)
Quarter: 2010Q4

REPORT INFORMATION
  Report Type: 
  Country: None (occurrence: None)
  Receive Date: 20101228
  Receipt Date: 20101214
  Transmission Date: 20110411
  Serious: Yes (Hospitalization)
  Sender: FDA-Public Use
  Company Number: NL-MYLANLABS-2010S1022800

PATIENT
  Age: 50 Year
  Sex: Male

DRUGS (1)
  1. RANITIDINE [Suspect]
     Indication: DYSPEPSIA
     Dosage: 2DD150MG
     Route: 048
     Dates: start: 20101203

REACTIONS (1)
  - CHOLESTASIS [None]
